FAERS Safety Report 21254889 (Version 1)
Quarter: 2022Q3

REPORT INFORMATION
  Report Type: Other
  Country: EG (occurrence: None)
  Receive Date: 20220825
  Receipt Date: 20220825
  Transmission Date: 20221027
  Serious: Yes (Other)
  Sender: FDA-Public Use
  Company Number: EG-ROCHE-3162753

PATIENT
  Age: 54 Year
  Sex: Female

DRUGS (1)
  1. OCREVUS [Suspect]
     Active Substance: OCRELIZUMAB
     Indication: Multiple sclerosis
     Route: 042
     Dates: start: 20210922

REACTIONS (5)
  - Multiple sclerosis [Recovered/Resolved]
  - Enuresis [Unknown]
  - Asthma [Unknown]
  - Gait inability [Unknown]
  - Movement disorder [Unknown]

NARRATIVE: CASE EVENT DATE: 20220313
